FAERS Safety Report 17107082 (Version 1)
Quarter: 2019Q4

REPORT INFORMATION
  Report Type: Spontaneous
  Country: FR (occurrence: FR)
  Receive Date: 20191203
  Receipt Date: 20191203
  Transmission Date: 20200122
  Serious: Yes (Life-Threatening, Hospitalization)
  Sender: FDA-Public Use
  Company Number: FR-MYLANLABS-2019M1116688

PATIENT
  Age: 14 Year
  Sex: Male
  Weight: 94 kg

DRUGS (2)
  1. FLUOXETINE [Suspect]
     Active Substance: FLUOXETINE HYDROCHLORIDE
     Indication: BEHAVIOUR DISORDER
     Dosage: 4 MILLIGRAM, QD
     Route: 048
     Dates: start: 2015
  2. RISPERIDONE. [Suspect]
     Active Substance: RISPERIDONE
     Indication: BEHAVIOUR DISORDER
     Dosage: 1 MILLIGRAM, QD
     Route: 048
     Dates: start: 2015, end: 20190625

REACTIONS (1)
  - Venous thrombosis [Recovering/Resolving]

NARRATIVE: CASE EVENT DATE: 20190621
